FAERS Safety Report 4474156-9 (Version None)
Quarter: 2004Q4

REPORT INFORMATION
  Report Type: 
  Country: None (occurrence: None)
  Receive Date: 20041008
  Receipt Date: 20040930
  Transmission Date: 20050328
  Serious: Yes (Other)
  Sender: FDA-Public Use
  Company Number: 2004S1000425

PATIENT
  Age: 41 Year
  Sex: Male

DRUGS (1)
  1. INOMAX [Suspect]
     Indication: DIAGNOSTIC PROCEDURE
     Dosage: 20 PPM;CONT;INH
     Route: 055
     Dates: start: 20040930, end: 20040930

REACTIONS (1)
  - MEDICATION ERROR [None]
